FAERS Safety Report 9771740 (Version 2)
Quarter: 2014Q1

REPORT INFORMATION
  Report Type: Report from Study
  Country: JP (occurrence: JP)
  Receive Date: 20131219
  Receipt Date: 20140220
  Transmission Date: 20141002
  Serious: Yes (Hospitalization)
  Sender: FDA-Public Use
  Company Number: JP-AMGEN-JPNCT2013088696

PATIENT
  Age: 79 Year
  Sex: Male
  Weight: 50 kg

DRUGS (15)
  1. DARBEPOETIN ALFA [Suspect]
     Indication: NEPHROGENIC ANAEMIA
     Dosage: 120 MUG, UNK
     Route: 040
     Dates: start: 20110912
  2. JUSO [Concomitant]
     Dosage: UNK
     Route: 048
  3. SUPRAN                             /00402002/ [Concomitant]
     Dosage: UNK
     Route: 048
  4. PURSENNIDE                         /00571901/ [Concomitant]
     Dosage: UNK
     Route: 048
  5. GASMOTIN [Concomitant]
     Dosage: UNK
     Route: 048
  6. NU-LOTAN [Concomitant]
     Dosage: UNK
     Route: 048
  7. ALLOPURINOL [Concomitant]
     Dosage: UNK
     Route: 048
  8. GASLON N [Concomitant]
     Dosage: UNK
     Route: 048
  9. TEPRENONE [Concomitant]
     Dosage: UNK
     Route: 048
  10. ARGAMATE [Concomitant]
     Dosage: UNK
     Route: 048
  11. LOSARTAN K [Concomitant]
     Dosage: UNK
     Route: 048
  12. FEBURIC [Concomitant]
     Dosage: UNK
     Route: 048
  13. NEXIUM                             /01479302/ [Concomitant]
     Dosage: UNK
     Route: 048
  14. SENNOSIDE                          /00571901/ [Concomitant]
     Dosage: UNK
     Route: 048
  15. CONIEL [Concomitant]
     Dosage: UNK
     Route: 048

REACTIONS (6)
  - Bladder cancer [Not Recovered/Not Resolved]
  - Urinary tract infection [Recovered/Resolved]
  - Dehydration [Recovered/Resolved]
  - Gastroenteritis [Recovered/Resolved]
  - Upper respiratory tract inflammation [Recovered/Resolved]
  - Urinary tract infection [Recovered/Resolved]
